FAERS Safety Report 5428057-X (Version None)
Quarter: 2007Q3

REPORT INFORMATION
  Report Type: 
  Country: None (occurrence: None)
  Receive Date: 20070828
  Receipt Date: 20070820
  Transmission Date: 20080115
  Serious: Yes (Other)
  Sender: FDA-Public Use
  Company Number: CA-PFIZER INC-2007054190

PATIENT
  Sex: Female
  Weight: 63.5 kg

DRUGS (8)
  1. LIPITOR [Suspect]
     Indication: BLOOD CHOLESTEROL INCREASED
     Route: 048
  2. INDERAL [Concomitant]
     Indication: TREMOR
     Dosage: DAILY DOSE:20MG-FREQ:DAILY
     Route: 048
  3. PREMARIN [Concomitant]
     Indication: HORMONE REPLACEMENT THERAPY
     Dosage: DAILY DOSE:.3MG-FREQ:DAILY
     Route: 048
  4. VAGIFEM [Concomitant]
     Indication: HORMONE REPLACEMENT THERAPY
     Route: 067
  5. VAGIFEM [Concomitant]
     Indication: VULVOVAGINAL DRYNESS
  6. HYDROCHLOROTHIAZIDE [Concomitant]
     Indication: OEDEMA
     Route: 048
  7. HYDROCHLOROTHIAZIDE [Concomitant]
     Indication: FLUID RETENTION
  8. ASPIRIN [Concomitant]
     Route: 048

REACTIONS (1)
  - MUSCLE ATROPHY [None]
